FAERS Safety Report 6553474-4 (Version None)
Quarter: 2010Q1

REPORT INFORMATION
  Report Type: 
  Country: None (occurrence: None)
  Receive Date: 20100127
  Receipt Date: 20091223
  Transmission Date: 20100710
  Serious: Yes (Hospitalization)
  Sender: FDA-Public Use
  Company Number: US-SANOFI-AVENTIS-2009SA011318

PATIENT
  Age: 65 Year
  Sex: Female

DRUGS (5)
  1. LANTUS [Suspect]
     Indication: TYPE 2 DIABETES MELLITUS
     Route: 058
  2. ATENOLOL [Concomitant]
     Dates: start: 20000101
  3. LISINOPRIL [Concomitant]
     Dates: start: 20070101
  4. SIMVASTATIN [Concomitant]
     Dates: start: 20070101
  5. METFORMIN HCL [Concomitant]
     Dates: start: 20060601

REACTIONS (1)
  - PULMONARY HYPERTENSION [None]
